FAERS Safety Report 6502339-2 (Version None)
Quarter: 2009Q4

REPORT INFORMATION
  Report Type: 
  Country: None (occurrence: None)
  Receive Date: 20091203
  Receipt Date: 20091117
  Transmission Date: 20100525
  Serious: Yes (Death)
  Sender: FDA-Public Use
  Company Number: B0608663A

PATIENT
  Sex: 0

DRUGS (5)
  1. MELPHALAN HYDROCHLORIDE [Suspect]
     Indication: LYMPHOMA
     Dosage: 140 MG/M2 /
  2. ETOPOSIDE [Suspect]
     Indication: LYMPHOMA
     Dosage: 200 MG/M2 /
  3. FOTEMUSTINE (FOTEMUSTINE) (FORMULATION UNKNOWN) [Suspect]
     Indication: LYMPHOMA
     Dosage: 150 MG/M2
  4. CYTARABINE [Suspect]
     Indication: LYMPHOMA
     Dosage: 400 MG/M2
  5. GRANULOCYTE COL. STIM. FACT [Concomitant]

REACTIONS (1)
  - BACTERIAL INFECTION [None]
